FAERS Safety Report 8387363-X (Version None)
Quarter: 2012Q2

REPORT INFORMATION
  Report Type: 
  Country: None (occurrence: None)
  Receive Date: 20120525
  Receipt Date: 20120523
  Transmission Date: 20120825
  Serious: Yes (Life-Threatening, Hospitalization, Other)
  Sender: FDA-Public Use
  Company Number: IL-B.I. PHARMACEUTICALS,INC./RIDGEFIELD-2012-AP-00387RI

PATIENT
  Age: 75 Year
  Sex: Female

DRUGS (5)
  1. METHOTREXATE [Concomitant]
  2. SIMVASTATIN [Concomitant]
  3. ALLOPURINOL [Concomitant]
  4. FAMOTIDINE [Concomitant]
  5. PRADAXA [Suspect]
     Indication: ARRHYTHMIA PROPHYLAXIS
     Dosage: 220 MG

REACTIONS (1)
  - CARDIAC TAMPONADE [None]
